FAERS Safety Report 13538982 (Version 1)
Quarter: 2017Q2

REPORT INFORMATION
  Report Type: Spontaneous
  Country: US (occurrence: US)
  Receive Date: 20170511
  Receipt Date: 20170511
  Transmission Date: 20170830
  Serious: No
  Sender: FDA-Public Use
  Company Number: None

PATIENT
  Age: 43 Year
  Sex: Female

DRUGS (1)
  1. HUMIRA [Suspect]
     Active Substance: ADALIMUMAB
     Indication: COLITIS ULCERATIVE
     Route: 058
     Dates: start: 20161222

REACTIONS (11)
  - Rash macular [None]
  - Insomnia [None]
  - Impaired healing [None]
  - Rash [None]
  - Palmar erythema [None]
  - Skin disorder [None]
  - Oedema peripheral [None]
  - Depression [None]
  - Laceration [None]
  - Swelling face [None]
  - Night sweats [None]

NARRATIVE: CASE EVENT DATE: 20170503
